FAERS Safety Report 9482037 (Version 1)
Quarter: 2013Q3

REPORT INFORMATION
  Report Type: Spontaneous
  Country: CA (occurrence: CA)
  Receive Date: 20130828
  Receipt Date: 20130828
  Transmission Date: 20140515
  Serious: Yes (Other)
  Sender: FDA-Public Use
  Company Number: CA-JNJFOC-20130813513

PATIENT
  Age: 41 Year
  Sex: Female

DRUGS (1)
  1. REMICADE [Suspect]
     Indication: CROHN^S DISEASE
     Route: 042
     Dates: start: 201204

REACTIONS (12)
  - Intestinal resection [Unknown]
  - Breast mass [Unknown]
  - Flushing [Unknown]
  - Hypotension [Unknown]
  - Infusion related reaction [Unknown]
  - Abdominal pain [Unknown]
  - Arthralgia [Unknown]
  - Fluid retention [Unknown]
  - Headache [Unknown]
  - Rash [Unknown]
  - Drug ineffective [Unknown]
  - Vertigo [Unknown]
